FAERS Safety Report 12969915 (Version 1)
Quarter: 2016Q4

REPORT INFORMATION
  Report Type: Spontaneous
  Country: US (occurrence: US)
  Receive Date: 20161123
  Receipt Date: 20161123
  Transmission Date: 20170207
  Serious: Yes (Hospitalization, Other)
  Sender: FDA-Public Use
  Company Number: US-APOTEX-2016AP014958

PATIENT
  Age: 30 Year
  Sex: Male

DRUGS (2)
  1. LISINOPRIL. [Suspect]
     Active Substance: LISINOPRIL
     Indication: PROPHYLAXIS
  2. LISINOPRIL. [Suspect]
     Active Substance: LISINOPRIL
     Indication: VASOSPASM
     Route: 065

REACTIONS (2)
  - Pancreatitis [Recovered/Resolved]
  - Jaundice cholestatic [Recovered/Resolved]
